FAERS Safety Report 8815585 (Version 2)
Quarter: 2012Q4

REPORT INFORMATION
  Report Type: 
  Country: US (occurrence: US)
  Receive Date: 20120928
  Receipt Date: 20121212
  Transmission Date: 20130627
  Serious: Yes (Other)
  Sender: FDA-Public Use
  Company Number: US-ELI_LILLY_AND_COMPANY-US201209005767

PATIENT
  Sex: Male

DRUGS (3)
  1. HUMALOG LISPRO [Suspect]
     Indication: DIABETES MELLITUS
     Dosage: UNK UNK, unknown
  2. HUMALOG LISPRO [Suspect]
     Dosage: UNK UNK, unknown
  3. HUMALOG LISPRO [Suspect]
     Dosage: UNK, unknown

REACTIONS (2)
  - Myocardial infarction [Recovering/Resolving]
  - Accidental exposure to product [Unknown]
